FAERS Safety Report 11068739 (Version 2)
Quarter: 2015Q2

REPORT INFORMATION
  Report Type: Spontaneous
  Country: IT (occurrence: IT)
  Receive Date: 20150427
  Receipt Date: 20150609
  Transmission Date: 20150821
  Serious: Yes (Life-Threatening)
  Sender: FDA-Public Use
  Company Number: IT-009507513-1504ITA018446

PATIENT
  Age: 70 Year
  Sex: Female
  Weight: 65 kg

DRUGS (3)
  1. SOFOSBUVIR [Suspect]
     Active Substance: SOFOSBUVIR
     Indication: CHRONIC HEPATITIS C
     Dosage: QD
     Route: 048
     Dates: start: 20150304
  2. RIBAVIRIN. [Suspect]
     Active Substance: RIBAVIRIN
     Indication: CHRONIC HEPATITIS C
     Dosage: TOTAL DAILY DOSE: 1 G
     Route: 048
     Dates: start: 20150304
  3. HYDROCHLOROTHIAZIDE (+) RAMIPRIL [Concomitant]
     Dosage: STRENGTH: 7.5 MG
     Route: 048
     Dates: start: 201412

REACTIONS (4)
  - Acute kidney injury [Recovering/Resolving]
  - Asthmatic crisis [Recovering/Resolving]
  - Infectious pleural effusion [Recovering/Resolving]
  - Pneumonia bacterial [Recovering/Resolving]

NARRATIVE: CASE EVENT DATE: 20150314
